FAERS Safety Report 10511448 (Version 3)
Quarter: 2015Q2

REPORT INFORMATION
  Report Type: Spontaneous
  Country: US (occurrence: US)
  Receive Date: 20141010
  Receipt Date: 20150519
  Transmission Date: 20150821
  Serious: Yes (Hospitalization)
  Sender: FDA-Public Use
  Company Number: US-BAYER-2014-148666

PATIENT
  Age: 29 Year
  Sex: Female

DRUGS (6)
  1. MIRENA [Suspect]
     Active Substance: LEVONORGESTREL
     Indication: MENORRHAGIA
  2. FERROUS SULFATE [Concomitant]
     Active Substance: FERROUS SULFATE\FERROUS SULFATE, DRIED
     Dosage: 325 MG, UNK
     Route: 048
  3. FIORICET [Concomitant]
     Active Substance: ACETAMINOPHEN\BUTALBITAL\CAFFEINE
     Dosage: 50-325-40 MG
     Route: 048
  4. MIRENA [Suspect]
     Active Substance: LEVONORGESTREL
     Indication: CONTRACEPTION
     Dosage: 20 MCG/24HR, CONT
     Route: 015
     Dates: start: 20120724, end: 20121015
  5. ZOFRAN [Concomitant]
     Active Substance: ONDANSETRON HYDROCHLORIDE
     Dosage: 4 MG, UNK
     Route: 048
  6. PRENATE /01699801/ [Concomitant]
     Route: 048

REACTIONS (13)
  - Anxiety [None]
  - Medical device discomfort [None]
  - Depression [None]
  - Pelvic pain [None]
  - Device dislocation [None]
  - Genital haemorrhage [None]
  - Uterine perforation [None]
  - Abdominal pain [None]
  - Injury [None]
  - Fear [None]
  - Emotional distress [None]
  - Internal injury [None]
  - Depressed mood [None]

NARRATIVE: CASE EVENT DATE: 201209
